FAERS Safety Report 8109327-3 (Version None)
Quarter: 2012Q1

REPORT INFORMATION
  Report Type: 
  Country: None (occurrence: None)
  Receive Date: 20120202
  Receipt Date: 20120120
  Transmission Date: 20120608
  Serious: Yes (Death, Other)
  Sender: FDA-Public Use
  Company Number: GB-MYLANLABS-2012S1001496

PATIENT
  Age: 51 Year
  Sex: Male

DRUGS (5)
  1. VENLAFAXINE HCL [Suspect]
     Indication: DEPRESSION
     Dates: start: 20100101
  2. VENLAFAXINE HCL [Suspect]
     Dates: start: 20100827, end: 20100930
  3. VENLAFAXINE HCL [Suspect]
  4. MIRTAZAPINE [Suspect]
     Indication: DEPRESSION
     Dates: start: 20100101
  5. VENLAFAXINE HCL [Suspect]
     Dates: start: 20100930

REACTIONS (4)
  - ANXIETY [None]
  - COMPLETED SUICIDE [None]
  - DRUG INEFFECTIVE [None]
  - DEPRESSION [None]
